FAERS Safety Report 5162293-5 (Version None)
Quarter: 2006Q4

REPORT INFORMATION
  Report Type: 
  Country: None (occurrence: None)
  Receive Date: 20060919
  Receipt Date: 20060725
  Transmission Date: 20070319
  Serious: No
  Sender: FDA-Public Use
  Company Number: 2006US001821

PATIENT
  Age: 57 Year
  Sex: Female

DRUGS (5)
  1. VESICARE [Suspect]
     Indication: HYPERTONIC BLADDER
     Dosage: 5MG ORAL
     Route: 048
     Dates: start: 20060718
  2. PENTASA [Concomitant]
  3. PAXIL [Concomitant]
  4. MULTIVITAMIN [Concomitant]
  5. IRON (IRON) [Concomitant]

REACTIONS (2)
  - ABDOMINAL PAIN UPPER [None]
  - STOMACH DISCOMFORT [None]
